FAERS Safety Report 18605606 (Version 1)
Quarter: 2020Q4

REPORT INFORMATION
  Report Type: Spontaneous
  Country: DK (occurrence: DK)
  Receive Date: 20201211
  Receipt Date: 20201211
  Transmission Date: 20210114
  Serious: Yes (Other)
  Sender: FDA-Public Use
  Company Number: DK-PFIZER INC-2020486583

PATIENT
  Age: 65 Year
  Sex: Male
  Weight: 77 kg

DRUGS (6)
  1. ZARATOR [Suspect]
     Active Substance: ATORVASTATIN CALCIUM
     Indication: CARDIOVASCULAR EVENT PROPHYLAXIS
     Dosage: 80 MG, 1X/DAY
     Route: 048
     Dates: start: 20190710
  2. ANCOZAN [Concomitant]
     Active Substance: LOSARTAN POTASSIUM
     Indication: CARDIAC DISORDER
     Dosage: 25 MG, 1X/DAY
     Route: 048
     Dates: start: 20190710
  3. THYCAPZOL [Concomitant]
     Active Substance: METHIMAZOLE
     Indication: HYPERMETABOLISM
     Dosage: 2.5 MG, 1X/DAY
     Route: 048
     Dates: start: 20190905
  4. ALENDRONAT SANDOZ [Concomitant]
     Active Substance: ALENDRONATE SODIUM
     Indication: OSTEOPOROSIS
     Dosage: 70 MG, WEEKLY
     Route: 048
     Dates: start: 20190905
  5. HJERTEMAGNYL [ACETYLSALICYLIC ACID] [Concomitant]
     Active Substance: ASPIRIN
     Indication: THROMBOSIS PROPHYLAXIS
     Dosage: 75 MG, 1X/DAY
     Route: 048
     Dates: start: 20190610
  6. BRILIQUE [Concomitant]
     Active Substance: TICAGRELOR
     Indication: INTRACARDIAC THROMBUS
     Dosage: 180 MG, 1X/DAY
     Route: 048
     Dates: start: 20190710

REACTIONS (1)
  - Erectile dysfunction [Not Recovered/Not Resolved]
